FAERS Safety Report 8853315 (Version 1)
Quarter: 2012Q4

REPORT INFORMATION
  Report Type: 
  Country: US (occurrence: US)
  Receive Date: 20121022
  Receipt Date: 20121022
  Transmission Date: 20130627
  Serious: No
  Sender: FDA-Public Use
  Company Number: US-009507513-1210USA008254

PATIENT
  Sex: Female

DRUGS (6)
  1. SINGULAIR [Suspect]
     Indication: ASTHMA
     Dosage: 10 mg, qd
     Route: 048
     Dates: start: 200810
  2. SINGULAIR [Suspect]
     Indication: HYPERSENSITIVITY
  3. DOXEPIN HYDROCHLORIDE [Concomitant]
  4. PEPCID AC [Concomitant]
  5. ZYRTEC [Concomitant]
  6. ALLEGRA [Concomitant]

REACTIONS (2)
  - Adverse event [Not Recovered/Not Resolved]
  - Dizziness [Not Recovered/Not Resolved]
